FAERS Safety Report 10504021 (Version 3)
Quarter: 2015Q4

REPORT INFORMATION
  Report Type: Spontaneous
  Country: CN (occurrence: CN)
  Receive Date: 20141008
  Receipt Date: 20151204
  Transmission Date: 20160304
  Serious: Yes (Other)
  Sender: FDA-Public Use
  Company Number: CN-JNJFOC-20141001678

PATIENT

DRUGS (1)
  1. INFLIXIMAB, RECOMBINANT [Suspect]
     Active Substance: INFLIXIMAB
     Indication: INFLAMMATORY BOWEL DISEASE
     Route: 042

REACTIONS (7)
  - Lupus-like syndrome [Unknown]
  - Antibody test abnormal [Unknown]
  - Pneumonia [Unknown]
  - Drug level decreased [Unknown]
  - Inflammatory bowel disease [Unknown]
  - Psoriasis [Unknown]
  - Infusion related reaction [Unknown]
